FAERS Safety Report 8212242-8 (Version None)
Quarter: 2012Q1

REPORT INFORMATION
  Report Type: 
  Country: None (occurrence: None)
  Receive Date: 20120315
  Receipt Date: 20120309
  Transmission Date: 20120608
  Serious: Yes (Hospitalization, Other)
  Sender: FDA-Public Use
  Company Number: US-JNJFOC-20100901286

PATIENT
  Sex: Male

DRUGS (8)
  1. PREDNISONE TAB [Suspect]
     Indication: UPPER RESPIRATORY TRACT INFECTION
     Route: 065
     Dates: start: 20090101
  2. AUGMENTIN '125' [Suspect]
     Indication: UPPER RESPIRATORY TRACT INFECTION
     Route: 065
     Dates: start: 20090101
  3. PREDNISONE TAB [Suspect]
     Indication: ASTHMA
     Route: 065
     Dates: start: 20090101
  4. AUGMENTIN '125' [Suspect]
     Indication: ASTHMA
     Route: 065
     Dates: start: 20090101
  5. LEVAQUIN [Suspect]
     Indication: ASTHMA
     Route: 048
  6. LEVAQUIN [Suspect]
     Indication: UPPER RESPIRATORY TRACT INFECTION
     Route: 048
  7. AZITHROMYCIN [Suspect]
     Indication: UPPER RESPIRATORY TRACT INFECTION
     Route: 065
     Dates: start: 20090101
  8. AZITHROMYCIN [Suspect]
     Indication: ASTHMA
     Route: 065
     Dates: start: 20090101

REACTIONS (5)
  - RESPIRATORY TRACT INFECTION [None]
  - RASH [None]
  - STEVENS-JOHNSON SYNDROME [None]
  - ERYTHEMA MULTIFORME [None]
  - DARK CIRCLES UNDER EYES [None]
